FAERS Safety Report 9900513 (Version 1)
Quarter: 2014Q1

REPORT INFORMATION
  Report Type: Spontaneous
  Country: US (occurrence: US)
  Receive Date: 20140217
  Receipt Date: 20140217
  Transmission Date: 20141002
  Serious: No
  Sender: FDA-Public Use
  Company Number: US-BIOGENIDEC-2014BI014083

PATIENT
  Age: 49 Year
  Sex: Female

DRUGS (1)
  1. TYSABRI [Suspect]
     Indication: MULTIPLE SCLEROSIS
     Route: 042
     Dates: start: 20110419

REACTIONS (6)
  - Cognitive disorder [Not Recovered/Not Resolved]
  - Muscle spasticity [Recovered/Resolved]
  - Gait disturbance [Recovered/Resolved]
  - Musculoskeletal disorder [Recovered/Resolved]
  - Fatigue [Not Recovered/Not Resolved]
  - Multiple sclerosis relapse [Recovered/Resolved]
